FAERS Safety Report 10370211 (Version 1)
Quarter: 2014Q3

REPORT INFORMATION
  Report Type: Report from Study
  Country: BR (occurrence: BR)
  Receive Date: 20140808
  Receipt Date: 20140808
  Transmission Date: 20150326
  Serious: Yes (Death, Hospitalization, Other)
  Sender: FDA-Public Use
  Company Number: PHHY2014BR096981

PATIENT
  Age: 87 Year
  Sex: Female
  Weight: 64 kg

DRUGS (8)
  1. DIOVAN [Suspect]
     Active Substance: VALSARTAN
     Indication: CARDIAC DISORDER
     Dosage: 80 MG, DAILY
     Route: 048
  2. SYNTHROID [Concomitant]
     Active Substance: LEVOTHYROXINE SODIUM
     Indication: THYROID DISORDER
     Dosage: 80 MG, UNK
  3. DIOVAN [Suspect]
     Active Substance: VALSARTAN
     Indication: AMERICAN TRYPANOSOMIASIS
  4. HIDRION [Concomitant]
     Indication: DIURETIC THERAPY
     Dosage: UNK UKN, UNK
  5. EXELON [Concomitant]
     Active Substance: RIVASTIGMINE TARTRATE
     Indication: DEMENTIA ALZHEIMER^S TYPE
     Dosage: 1.5 MG, UNK
  6. DIOVAN [Suspect]
     Active Substance: VALSARTAN
     Indication: OFF LABEL USE
  7. ATORVASTATIN [Concomitant]
     Active Substance: ATORVASTATIN
     Indication: BLOOD CHOLESTEROL
     Dosage: 40 MG, UNK
  8. CONCOR [Concomitant]
     Active Substance: BISOPROLOL FUMARATE
     Indication: CARDIAC DISORDER
     Dosage: 10 MG, UNK

REACTIONS (5)
  - Fall [Unknown]
  - Muscle abscess [Unknown]
  - Hyponatraemia [Unknown]
  - Cardiac arrest [Fatal]
  - Sepsis [Unknown]

NARRATIVE: CASE EVENT DATE: 20140527
